FAERS Safety Report 8155129-1 (Version None)
Quarter: 2012Q1

REPORT INFORMATION
  Report Type: 
  Country: None (occurrence: None)
  Receive Date: 20120221
  Receipt Date: 20120208
  Transmission Date: 20120608
  Serious: Yes (Other)
  Sender: FDA-Public Use
  Company Number: US-ELI_LILLY_AND_COMPANY-US200712004970

PATIENT
  Sex: Female
  Weight: 59.41 kg

DRUGS (16)
  1. BYETTA [Suspect]
     Dosage: 10 UG, BID
     Route: 058
     Dates: end: 20120208
  2. METFORMIN HCL [Concomitant]
     Indication: TYPE 2 DIABETES MELLITUS
     Dosage: 1500 MG, QD
     Route: 048
  3. BYETTA [Suspect]
     Indication: TYPE 2 DIABETES MELLITUS
     Dosage: 5 UG, 2/D
     Route: 058
     Dates: start: 20050901
  4. BYETTA [Suspect]
     Dosage: 10 UG, 2/D
     Route: 058
  5. VITAMIN D [Concomitant]
     Dosage: 2000 IU, QD
     Route: 048
  6. BYETTA [Suspect]
     Dosage: 10 UG, UNKNOWN
     Route: 058
  7. AMARYL [Concomitant]
     Indication: TYPE 2 DIABETES MELLITUS
     Dosage: 0.5 MG, QD
     Route: 048
  8. DIOVAN [Concomitant]
     Dosage: 160 MG, QD
     Route: 048
  9. ASPIRIN [Concomitant]
     Dosage: 81 MG, QD
     Route: 048
  10. BYETTA [Suspect]
     Dosage: 10 UG, 2/D
     Route: 058
  11. CREON [Concomitant]
     Indication: PANCREATITIS
     Dosage: UNK, BID
     Route: 048
     Dates: start: 20111001
  12. PRAVACHOL [Concomitant]
     Indication: HYPERCHOLESTEROLAEMIA
     Dosage: 80 MG, QD
     Route: 048
  13. GLUCERNA [Concomitant]
     Indication: PANCREATITIS
     Dosage: UNK, BID
     Route: 048
  14. GLIMEPIRIDE [Concomitant]
     Indication: TYPE 2 DIABETES MELLITUS
     Dosage: 1.5 D/F, DAILY (1/D)
     Route: 048
  15. LOPID [Concomitant]
     Indication: HYPERTRIGLYCERIDAEMIA
     Dosage: 600 MG, BID
     Route: 048
  16. TOPROL-XL [Concomitant]
     Dosage: 25 MG, BID
     Route: 048

REACTIONS (10)
  - FLATULENCE [None]
  - HUNGER [None]
  - WEIGHT DECREASED [None]
  - BLOOD GLUCOSE INCREASED [None]
  - MALAISE [None]
  - UPPER RESPIRATORY TRACT CONGESTION [None]
  - DECREASED APPETITE [None]
  - DIARRHOEA [None]
  - PANCREATITIS CHRONIC [None]
  - DEAFNESS [None]
